FAERS Safety Report 8961558 (Version 1)
Quarter: 2012Q4

REPORT INFORMATION
  Report Type: 
  Country: US (occurrence: US)
  Receive Date: 20121213
  Receipt Date: 20121213
  Transmission Date: 20130627
  Serious: Yes (Other)
  Sender: FDA-Public Use
  Company Number: US-BAYER-2012-130621

PATIENT
  Age: 66 Year
  Sex: Female

DRUGS (15)
  1. BETASERON [Suspect]
     Indication: SECONDARY PROGRESSIVE MULTIPLE SCLEROSIS
     Dosage: 8 miu, QOD
     Dates: start: 20121005, end: 20121130
  2. SIMVASTIN [Concomitant]
  3. METOPROLOL [Concomitant]
  4. GLUCOPHAGE [Concomitant]
  5. LASIX [Concomitant]
  6. TRAMADOL [Concomitant]
  7. ALLEGRA [Concomitant]
  8. HUMULIN REGULAR [Concomitant]
  9. ENALAPRIL [Concomitant]
  10. ASPIRIN [Concomitant]
  11. IRON [Concomitant]
  12. VITAMIN B12 (CYANOCOBALAMIN AND ANALOGUES) [Concomitant]
  13. VITAMIN D [Concomitant]
  14. LEVOXYL [Concomitant]
  15. CRANBERRY [Concomitant]

REACTIONS (5)
  - Syncope [Recovered/Resolved]
  - Vomiting [Recovered/Resolved]
  - Headache [Not Recovered/Not Resolved]
  - Diarrhoea [Recovered/Resolved]
  - Asthenia [Recovered/Resolved]
